FAERS Safety Report 4537491-1 (Version None)
Quarter: 2004Q4

REPORT INFORMATION
  Report Type: 
  Country: None (occurrence: None)
  Receive Date: 20041221
  Receipt Date: 20041112
  Transmission Date: 20050328
  Serious: No
  Sender: FDA-Public Use
  Company Number: A-US2004-08103

PATIENT

DRUGS (2)
  1. TRACLEER [Suspect]
     Indication: PULMONARY HYPERTENSION
     Dosage: 125 MG, BID, ORAL
     Route: 048
  2. TYLENOL W/ CODEINE NO. 3 [Suspect]
     Indication: PULMONARY HYPERTENSION

REACTIONS (2)
  - CHEST PAIN [None]
  - DRUG INTERACTION [None]
